FAERS Safety Report 8188842 (Version 3)
Quarter: 2012Q4

REPORT INFORMATION
  Report Type: Spontaneous
  Country: US (occurrence: None)
  Receive Date: 20111007
  Receipt Date: 20120426
  Transmission Date: 20130627
  Serious: Yes (Other)
  Sender: FDA-Public Use
  Company Number: 2011GW000518

PATIENT
  Age: 61 Year
  Sex: Male
  Weight: 79.38 kg

DRUGS (2)
  1. ZYCLARA [Suspect]
     Indication: ACTINIC KERATOSIS
     Dosage: 3.75 PCT; X1; TOP
     Route: 061
     Dates: start: 20110918, end: 20110918
  2. IMIQUIMOD [Concomitant]

REACTIONS (8)
  - TRIGEMINAL NEURALGIA [None]
  - ARRHYTHMIA [None]
  - VASCULAR HEADACHE [None]
  - INFLUENZA LIKE ILLNESS [None]
  - MALAISE [None]
  - APPLICATION SITE SWELLING [None]
  - APPLICATION SITE INFLAMMATION [None]
  - APPLICATION SITE SCAB [None]
